FAERS Safety Report 8260504 (Version 2)
Quarter: 2013Q2

REPORT INFORMATION
  Report Type: Spontaneous
  Country: CA (occurrence: CA)
  Receive Date: 20111123
  Receipt Date: 20130422
  Transmission Date: 20140414
  Serious: Yes (Hospitalization)
  Sender: FDA-Public Use
  Company Number: CA-JNJFOC-20111102211

PATIENT
  Age: 61 Year
  Sex: Male

DRUGS (2)
  1. REMICADE [Suspect]
     Indication: COLITIS ULCERATIVE
     Dosage: APPROXIMATE TOTAL NUMBER OF INFUSIONS RECEIVED WERE 14
     Route: 042
     Dates: start: 2009, end: 201108
  2. REMICADE [Suspect]
     Indication: CROHN^S DISEASE
     Dosage: APPROXIMATE TOTAL NUMBER OF INFUSIONS RECEIVED WERE 14
     Route: 042
     Dates: start: 2009, end: 201108

REACTIONS (3)
  - Disseminated tuberculosis [Recovered/Resolved]
  - Pleural effusion [Recovered/Resolved]
  - Chest pain [Unknown]
